FAERS Safety Report 8568774-6 (Version None)
Quarter: 2012Q3

REPORT INFORMATION
  Report Type: 
  Country: None (occurrence: None)
  Receive Date: 20120803
  Receipt Date: 20120316
  Transmission Date: 20120928
  Serious: No
  Sender: FDA-Public Use
  Company Number: US-ABBOTT-12P-163-0916249-00

PATIENT
  Sex: Male

DRUGS (2)
  1. ASPIRIN [Concomitant]
     Indication: PRODUCT USED FOR UNKNOWN INDICATION
  2. NIASPAN [Suspect]
     Indication: PRODUCT USED FOR UNKNOWN INDICATION
     Dosage: AT BEDTIME
     Dates: start: 20120201

REACTIONS (5)
  - FLUSHING [None]
  - FEELING HOT [None]
  - PILOERECTION [None]
  - DYSPNOEA [None]
  - PARAESTHESIA [None]
